FAERS Safety Report 22082873 (Version 1)
Quarter: 2023Q1

REPORT INFORMATION
  Report Type: Spontaneous
  Country: GB (occurrence: GB)
  Receive Date: 20230310
  Receipt Date: 20230310
  Transmission Date: 20230418
  Serious: Yes (Disabling)
  Sender: FDA-Public Use
  Company Number: None

PATIENT
  Age: 43 Year
  Sex: Female
  Weight: 64.86 kg

DRUGS (3)
  1. VERAPAMIL [Suspect]
     Active Substance: VERAPAMIL HYDROCHLORIDE
     Indication: Product used for unknown indication
     Route: 065
     Dates: start: 201905
  2. MACROBID [Concomitant]
     Active Substance: NITROFURANTOIN\NITROFURANTOIN MONOHYDRATE
     Indication: Urinary tract infection
     Dosage: 200 MILLIGRAM DAILY;
     Route: 048
     Dates: start: 20180304
  3. BISOPROLOL [Concomitant]
     Active Substance: BISOPROLOL
     Indication: Ventricular extrasystoles
     Dates: start: 201905

REACTIONS (7)
  - Burning sensation [Unknown]
  - Rash papular [Unknown]
  - Illness [Unknown]
  - Diarrhoea [Unknown]
  - Tremor [Unknown]
  - Eye disorder [Unknown]
  - Erythema multiforme [Unknown]
